FAERS Safety Report 12941431 (Version 3)
Quarter: 2024Q1

REPORT INFORMATION
  Report Type: Spontaneous
  Country: US (occurrence: US)
  Receive Date: 20161115
  Receipt Date: 20240312
  Transmission Date: 20240409
  Serious: No
  Sender: FDA-Public Use
  Company Number: US-JNJFOC-20161103846

PATIENT
  Sex: Male

DRUGS (1)
  1. RISPERDAL [Suspect]
     Active Substance: RISPERIDONE
     Indication: Schizophrenia
     Dosage: IN VARYING DOSES OF 0.5 MG, 0.75 MG AND 1 MG AND AT VARYING FREQUENCIES OF AT BEDTIME AND/OR AT 1 PM
     Route: 048
     Dates: start: 2006, end: 2007

REACTIONS (2)
  - Gynaecomastia [Unknown]
  - Abnormal weight gain [Unknown]

NARRATIVE: CASE EVENT DATE: 20070101
